FAERS Safety Report 14473947 (Version 2)
Quarter: 2018Q1

REPORT INFORMATION
  Report Type: Spontaneous
  Country: US (occurrence: US)
  Receive Date: 20180201
  Receipt Date: 20180220
  Transmission Date: 20180509
  Serious: No
  Sender: FDA-Public Use
  Company Number: US-ELI_LILLY_AND_COMPANY-US201801011821

PATIENT
  Sex: Female

DRUGS (2)
  1. UNKNOWN PRODUCT [Suspect]
     Active Substance: UNSPECIFIED INGREDIENT
     Indication: PRODUCT USED FOR UNKNOWN INDICATION
     Dosage: 30 MG, DAILY
     Route: 061
     Dates: start: 20171009, end: 20171120
  2. UNKNOWN PRODUCT [Suspect]
     Active Substance: UNSPECIFIED INGREDIENT
     Dosage: 30 MG, DAILY
     Route: 061
     Dates: start: 20171123, end: 20180104

REACTIONS (1)
  - Blood testosterone decreased [Unknown]

NARRATIVE: CASE EVENT DATE: 201711
